FAERS Safety Report 12474695 (Version 1)
Quarter: 2016Q2

REPORT INFORMATION
  Report Type: Spontaneous
  Country: US (occurrence: None)
  Receive Date: 20160616
  Receipt Date: 20160616
  Transmission Date: 20160815
  Serious: No
  Sender: FDA-Public Use
  Company Number: None

PATIENT
  Age: 50 Year
  Sex: Female

DRUGS (1)
  1. ACTHAR [Suspect]
     Active Substance: CORTICOTROPIN

REACTIONS (5)
  - Erythema multiforme [None]
  - Oliguria [None]
  - Pruritus [None]
  - Incorrect dose administered [None]
  - Haematuria [None]

NARRATIVE: CASE EVENT DATE: 20160601
